FAERS Safety Report 11470799 (Version 2)
Quarter: 2015Q3

REPORT INFORMATION
  Report Type: Spontaneous
  Country: US (occurrence: US)
  Receive Date: 20150903
  Receipt Date: 20150903
  Transmission Date: 20151125
  Serious: No
  Sender: FDA-Public Use
  Company Number: US-ELI_LILLY_AND_COMPANY-US201201003564

PATIENT
  Sex: Female

DRUGS (1)
  1. CYMBALTA [Suspect]
     Active Substance: DULOXETINE HYDROCHLORIDE

REACTIONS (8)
  - Basilar migraine [Unknown]
  - Mood swings [Unknown]
  - Paraesthesia [Unknown]
  - Nervousness [Unknown]
  - Emotional distress [Unknown]
  - Drug ineffective [Recovered/Resolved]
  - Disturbance in attention [Unknown]
  - Drug withdrawal syndrome [Unknown]
